FAERS Safety Report 23911712 (Version 2)
Quarter: 2024Q3

REPORT INFORMATION
  Report Type: Spontaneous
  Country: US (occurrence: US)
  Receive Date: 20240528
  Receipt Date: 20240726
  Transmission Date: 20241017
  Serious: No
  Sender: SANOFI AVENTIS
  Company Number: US-SA-SAC20240524000439

PATIENT
  Sex: Male
  Weight: 74.5 kg

DRUGS (4)
  1. ALPROLIX [Suspect]
     Active Substance: EFTRENONACOG ALFA
     Indication: Factor IX deficiency
     Dosage: 7000 U (6300-7700), QW
     Route: 042
     Dates: start: 201507
  2. ALPROLIX [Suspect]
     Active Substance: EFTRENONACOG ALFA
     Indication: Factor IX deficiency
     Dosage: 7000 U (6300-7700), QW
     Route: 042
     Dates: start: 201507
  3. ALPROLIX [Suspect]
     Active Substance: EFTRENONACOG ALFA
     Dosage: 7000 U (6300-7700), PRN (AS NEEDED FOR BREAKTHROUGH BLEED)
     Route: 042
     Dates: start: 201507
  4. ALPROLIX [Suspect]
     Active Substance: EFTRENONACOG ALFA
     Dosage: 7000 U (6300-7700), PRN (AS NEEDED FOR BREAKTHROUGH BLEED)
     Route: 042
     Dates: start: 201507

REACTIONS (3)
  - Myalgia [Unknown]
  - Weight increased [Unknown]
  - Poor venous access [Unknown]

NARRATIVE: CASE EVENT DATE: 20240101
